FAERS Safety Report 20682122 (Version 1)
Quarter: 2022Q2

REPORT INFORMATION
  Report Type: Report from Study
  Country: CA (occurrence: CA)
  Receive Date: 20220407
  Receipt Date: 20220407
  Transmission Date: 20220721
  Serious: Yes (Other)
  Sender: FDA-Public Use
  Company Number: CA-ABBVIE-21K-028-4025148-00

PATIENT
  Sex: Male

DRUGS (5)
  1. HUMIRA [Suspect]
     Active Substance: ADALIMUMAB
     Indication: Crohn^s disease
     Route: 058
     Dates: start: 20200625, end: 202103
  2. HUMIRA [Suspect]
     Active Substance: ADALIMUMAB
     Route: 058
     Dates: start: 202103
  3. COVID-19 VACCINE NOS [Suspect]
     Active Substance: COVID-19 VACCINE NOS
     Indication: COVID-19 immunisation
     Route: 030
     Dates: start: 2021, end: 2021
  4. COVID-19 VACCINE NOS [Suspect]
     Active Substance: COVID-19 VACCINE NOS
     Route: 030
     Dates: start: 202107, end: 202107
  5. COMIRNATY [Suspect]
     Active Substance: TOZINAMERAN
     Indication: COVID-19 immunisation
     Dosage: VIAL?CONTAINS 6 DOSES OF 0.3 ML AFTER DILUTION
     Route: 030

REACTIONS (8)
  - Frequent bowel movements [Not Recovered/Not Resolved]
  - Adverse food reaction [Not Recovered/Not Resolved]
  - Gastrointestinal inflammation [Not Recovered/Not Resolved]
  - Fatigue [Not Recovered/Not Resolved]
  - Asthenopia [Not Recovered/Not Resolved]
  - Arthritis [Not Recovered/Not Resolved]
  - Drug ineffective [Not Recovered/Not Resolved]
  - Inflammatory marker increased [Not Recovered/Not Resolved]

NARRATIVE: CASE EVENT DATE: 20200101
